FAERS Safety Report 13506330 (Version 1)
Quarter: 2017Q2

REPORT INFORMATION
  Report Type: Spontaneous
  Country: US (occurrence: US)
  Receive Date: 20170502
  Receipt Date: 20170502
  Transmission Date: 20170830
  Serious: No
  Sender: FDA-Public Use
  Company Number: US-ROCHE-1532172

PATIENT
  Sex: Male

DRUGS (2)
  1. AVASTIN [Suspect]
     Active Substance: BEVACIZUMAB
     Indication: GLIOBLASTOMA
     Route: 041
  2. LOMUSTINE. [Concomitant]
     Active Substance: LOMUSTINE
     Indication: GLIOBLASTOMA

REACTIONS (1)
  - Confusional state [Not Recovered/Not Resolved]
